FAERS Safety Report 8669010 (Version 4)
Quarter: 2012Q4

REPORT INFORMATION
  Report Type: 
  Country: US (occurrence: US)
  Receive Date: 20120717
  Receipt Date: 20121112
  Transmission Date: 20130627
  Serious: Yes (Other)
  Sender: FDA-Public Use
  Company Number: US-PFIZER INC-2012169748

PATIENT
  Age: 57 Year
  Sex: Female

DRUGS (6)
  1. LIPITOR [Suspect]
     Dosage: 40 mg, 1x/day at bedtime
     Route: 048
     Dates: start: 2007
  2. LISINOPRIL W/HYDROCHLOROTHIAZIDE [Concomitant]
     Dosage: 20/ 12.5 mg, UNK
  3. TEMAZEPAM [Concomitant]
     Dosage: 30 mg, UNK
  4. NEXIUM [Concomitant]
     Dosage: 40 mg, UNK
  5. PAXIL [Concomitant]
     Dosage: 20 mg, UNK
  6. XANAX [Concomitant]
     Dosage: 0.5 mg, 2x/day

REACTIONS (1)
  - Spinal disorder [Unknown]
